FAERS Safety Report 22024624 (Version 1)
Quarter: 2023Q1

REPORT INFORMATION
  Report Type: Spontaneous
  Country: US (occurrence: None)
  Receive Date: 20230223
  Receipt Date: 20230223
  Transmission Date: 20230418
  Serious: No
  Sender: FDA-Public Use
  Company Number: US-ROCHE-3032352

PATIENT
  Sex: Male

DRUGS (2)
  1. XOLAIR [Suspect]
     Active Substance: OMALIZUMAB
     Indication: Idiopathic urticaria
     Dosage: STRENGTH- 150 MG/ML
     Route: 058
     Dates: start: 20210408
  2. XOLAIR [Suspect]
     Active Substance: OMALIZUMAB

REACTIONS (9)
  - Influenza [Unknown]
  - Pain [Unknown]
  - Chills [Unknown]
  - Hyperhidrosis [Unknown]
  - Lethargy [Unknown]
  - Somnolence [Unknown]
  - Rash [Unknown]
  - Liver disorder [Unknown]
  - COVID-19 [Recovered/Resolved]
